FAERS Safety Report 13003558 (Version 1)
Quarter: 2016Q4

REPORT INFORMATION
  Report Type: Spontaneous
  Country: LV (occurrence: LV)
  Receive Date: 20161206
  Receipt Date: 20161206
  Transmission Date: 20170207
  Serious: Yes (Other)
  Sender: FDA-Public Use
  Company Number: LV-ASTRAZENECA-2016SF27019

PATIENT
  Age: 57 Year
  Sex: Female
  Weight: 98 kg

DRUGS (3)
  1. BYDUREON [Suspect]
     Active Substance: EXENATIDE
     Indication: DIABETES MELLITUS
     Route: 058
     Dates: start: 20160928, end: 20161013
  2. HUMALOG KWIKPEN [Concomitant]
     Active Substance: INSULIN LISPRO
     Indication: DIABETES MELLITUS
     Dosage: 100 V/ML
     Route: 058
     Dates: start: 20160126
  3. TOUJEO SOLO STAR [Concomitant]
     Indication: DIABETES MELLITUS
     Dosage: 60.0MG UNKNOWN
     Route: 058
     Dates: start: 20160126

REACTIONS (5)
  - Injection site pruritus [Recovered/Resolved]
  - Dyspnoea [Recovered/Resolved]
  - Oedema [Recovered/Resolved]
  - Hypersensitivity [Recovered/Resolved]
  - Lip pruritus [Recovered/Resolved]

NARRATIVE: CASE EVENT DATE: 20161013
